FAERS Safety Report 6073947-0 (Version None)
Quarter: 2009Q1

REPORT INFORMATION
  Report Type: 
  Country: None (occurrence: None)
  Receive Date: 20090211
  Receipt Date: 20090205
  Transmission Date: 20090719
  Serious: Yes (Death)
  Sender: FDA-Public Use
  Company Number: PHHY2009DE04493

PATIENT
  Sex: Male

DRUGS (2)
  1. EUCREAS [Suspect]
     Dosage: 1 DF (1000 MG METFORMIN/50 MG VILDAGLIPTIN), BID
     Route: 048
     Dates: start: 20081030
  2. RASILEZ [Suspect]
     Dosage: 300 MG, QD
     Route: 048

REACTIONS (1)
  - DEATH [None]
